FAERS Safety Report 7986184-7 (Version None)
Quarter: 2011Q4

REPORT INFORMATION
  Report Type: 
  Country: None (occurrence: None)
  Receive Date: 20111216
  Receipt Date: 20111213
  Transmission Date: 20120403
  Serious: Yes (Hospitalization)
  Sender: FDA-Public Use
  Company Number: US-GLAXOSMITHKLINE-A0917581A

PATIENT
  Age: 80 Year
  Sex: Female

DRUGS (1)
  1. VOTRIENT [Suspect]
     Indication: NEOPLASM MALIGNANT
     Dosage: 800MG PER DAY
     Route: 048

REACTIONS (4)
  - ABDOMINAL PAIN [None]
  - HIP SURGERY [None]
  - DIARRHOEA [None]
  - HYPERTENSION [None]
